FAERS Safety Report 11086827 (Version 1)
Quarter: 2015Q2

REPORT INFORMATION
  Report Type: Spontaneous
  Country: FR (occurrence: FR)
  Receive Date: 20150504
  Receipt Date: 20150504
  Transmission Date: 20150821
  Serious: Yes (Death, Other)
  Sender: FDA-Public Use
  Company Number: FR-SA-2015SA047255

PATIENT
  Age: 80 Year
  Sex: Female

DRUGS (1)
  1. MYOZYME [Suspect]
     Active Substance: ALGLUCOSIDASE ALFA
     Indication: GLYCOGEN STORAGE DISEASE TYPE II
     Route: 042
     Dates: start: 200610, end: 200907

REACTIONS (4)
  - Tracheostomy [Unknown]
  - Condition aggravated [Fatal]
  - Superinfection [Fatal]
  - Liver abscess [Fatal]

NARRATIVE: CASE EVENT DATE: 2015
